FAERS Safety Report 14988930 (Version 1)
Quarter: 2018Q2

REPORT INFORMATION
  Report Type: Report from Study
  Country: CN (occurrence: CN)
  Receive Date: 20180608
  Receipt Date: 20180608
  Transmission Date: 20180711
  Serious: Yes (Death)
  Sender: FDA-Public Use
  Company Number: CN-PFIZER INC-2018229718

PATIENT
  Age: 61 Year
  Sex: Female

DRUGS (6)
  1. DEXAMETHASONE. [Suspect]
     Active Substance: DEXAMETHASONE
     Indication: PERIPHERAL T-CELL LYMPHOMA UNSPECIFIED
     Dosage: UNK, CYCLIC (2 COURSES OF REDUCED CHOPE CHEMOTHERAPY)
  2. CYCLOPHOSPHAMIDE. [Suspect]
     Active Substance: CYCLOPHOSPHAMIDE
     Indication: PERIPHERAL T-CELL LYMPHOMA UNSPECIFIED
     Dosage: UNK UNK, CYCLIC (2 COURSES OF REDUCED CHOPE CHEMOTHERAPY)
  3. EPIRUBICIN HCL [Suspect]
     Active Substance: EPIRUBICIN HYDROCHLORIDE
     Indication: PERIPHERAL T-CELL LYMPHOMA UNSPECIFIED
     Dosage: UNK, CYCLIC (2 COURSES OF REDUCED CHOPE CHEMOTHERAPY)
  4. PREDNISOLONE. [Suspect]
     Active Substance: PREDNISOLONE
     Indication: PERIPHERAL T-CELL LYMPHOMA UNSPECIFIED
     Dosage: UNK, CYCLIC (2 COURSES OF REDUCED CHOPE CHEMOTHERAPY)
  5. VINDESINE [Suspect]
     Active Substance: VINDESINE
     Indication: PERIPHERAL T-CELL LYMPHOMA UNSPECIFIED
     Dosage: UNK, CYCLIC (2 COURSES OF REDUCED CHOPE CHEMOTHERAPY)
  6. ETOPOSIDE. [Suspect]
     Active Substance: ETOPOSIDE
     Indication: PERIPHERAL T-CELL LYMPHOMA UNSPECIFIED
     Dosage: UNK UNK, CYCLIC (2 COURSES OF REDUCED CHOPE CHEMOTHERAPY)

REACTIONS (3)
  - Bone marrow failure [Fatal]
  - Lung infection [Fatal]
  - Cardiac failure [Fatal]
